FAERS Safety Report 24302794 (Version 2)
Quarter: 2024Q3

REPORT INFORMATION
  Report Type: Spontaneous
  Country: US (occurrence: US)
  Receive Date: 20240910
  Receipt Date: 20240918
  Transmission Date: 20241017
  Serious: No
  Sender: BAYER
  Company Number: US-BAYER-2024A128921

PATIENT
  Age: 23 Year
  Sex: Female

DRUGS (1)
  1. MIRALAX [Suspect]
     Active Substance: POLYETHYLENE GLYCOL 3350
     Indication: Gastrointestinal disorder
     Dosage: 17 G  OF POWDER WITH WATER
     Route: 048
     Dates: start: 20240903, end: 20240909

REACTIONS (3)
  - Drug ineffective [Not Recovered/Not Resolved]
  - Faeces hard [Not Recovered/Not Resolved]
  - Infrequent bowel movements [Not Recovered/Not Resolved]

NARRATIVE: CASE EVENT DATE: 20240903
